FAERS Safety Report 19496074 (Version 1)
Quarter: 2021Q3

REPORT INFORMATION
  Report Type: Spontaneous
  Country: US (occurrence: US)
  Receive Date: 20210701
  Receipt Date: 20210701
  Transmission Date: 20211014
  Serious: No
  Sender: FDA-Public Use
  Company Number: None

PATIENT
  Age: 53 Year
  Sex: Female
  Weight: 103.5 kg

DRUGS (7)
  1. FLONASE [Concomitant]
     Active Substance: FLUTICASONE PROPIONATE
  2. PRILOSEC [Concomitant]
     Active Substance: OMEPRAZOLE MAGNESIUM
  3. CYMBALTA [Concomitant]
     Active Substance: DULOXETINE HYDROCHLORIDE
  4. PROBIOTIC [Concomitant]
     Active Substance: PROBIOTICS NOS
  5. EMGALITY [Suspect]
     Active Substance: GALCANEZUMAB-GNLM
     Indication: MIGRAINE
     Dosage: ?          QUANTITY:1 INJECTION(S);OTHER FREQUENCY:ONCE A MONTH;?
     Route: 058
     Dates: start: 20210601, end: 20210630
  6. MULTI VITAMIN [Concomitant]
     Active Substance: VITAMINS
  7. SYNTHROID [Concomitant]
     Active Substance: LEVOTHYROXINE SODIUM

REACTIONS (17)
  - Abdominal distension [None]
  - Arthralgia [None]
  - Hyperhidrosis [None]
  - Pain [None]
  - Depression [None]
  - Pyrexia [None]
  - Panic attack [None]
  - Vertigo [None]
  - Rhinorrhoea [None]
  - Gastrooesophageal reflux disease [None]
  - Constipation [None]
  - Diarrhoea [None]
  - Nasal congestion [None]
  - Migraine [None]
  - Nausea [None]
  - Back pain [None]
  - Dry skin [None]

NARRATIVE: CASE EVENT DATE: 20210603
